FAERS Safety Report 22239180 (Version 1)
Quarter: 2023Q2

REPORT INFORMATION
  Report Type: Spontaneous
  Country: US (occurrence: None)
  Receive Date: 20230420
  Receipt Date: 20230420
  Transmission Date: 20230721
  Serious: Yes (Other)
  Sender: FDA-Public Use
  Company Number: None

PATIENT
  Age: 79 Year
  Sex: Female
  Weight: 73.8 kg

DRUGS (17)
  1. REVLIMID [Suspect]
     Active Substance: LENALIDOMIDE
     Indication: Plasma cell myeloma
     Dosage: FREQUENCY : DAILY?
     Route: 048
     Dates: start: 20230207, end: 20230403
  2. Aldactone 50 mg tablet [Concomitant]
  3. AMLODIPINE [Concomitant]
     Active Substance: AMLODIPINE BESYLATE
  4. Ativan 1 mg tablet [Concomitant]
  5. dexamethasone 4 mg table [Concomitant]
  6. ELIQUIS [Concomitant]
     Active Substance: APIXABAN
  7. ferrous sulfate 325 mg (65 mg iron) tablet [Concomitant]
  8. FUROSEMIDE [Concomitant]
     Active Substance: FUROSEMIDE
  9. GABAPENTIN [Concomitant]
     Active Substance: GABAPENTIN
  10. ketoconazole 2 % cream-miconazole 2 % tincture [Concomitant]
  11. levothyroxine 100 mcg tablet [Concomitant]
  12. METOPROLOL TARTRATE [Concomitant]
     Active Substance: METOPROLOL TARTRATE
  13. LOSARTAN [Concomitant]
     Active Substance: LOSARTAN
  14. omeprazole 20 mg tablet,delayed release [Concomitant]
  15. Percocet 10 mg-325 mg table [Concomitant]
  16. SINGULAIR [Concomitant]
     Active Substance: MONTELUKAST SODIUM
  17. triamcinolone acetonide 0.025 % topical cream [Concomitant]

REACTIONS (2)
  - Rash [None]
  - Fatigue [None]

NARRATIVE: CASE EVENT DATE: 20230403
